FAERS Safety Report 8549986-4 (Version None)
Quarter: 2012Q3

REPORT INFORMATION
  Report Type: 
  Country: None (occurrence: None)
  Receive Date: 20120730
  Receipt Date: 20120724
  Transmission Date: 20120928
  Serious: Yes (Death, Other)
  Sender: FDA-Public Use
  Company Number: US-CELGENEUS-163-50794-12072619

PATIENT

DRUGS (10)
  1. MELPHALAN HYDROCHLORIDE [Suspect]
     Indication: MULTIPLE MYELOMA
     Dosage: 140 OR 200 MG/M2
     Route: 065
  2. NEUPOGEN [Concomitant]
     Dosage: 10 MICROGRAM/KILOGRAM
     Route: 058
  3. ASPIRIN [Concomitant]
     Route: 065
  4. DIPHENHYDRAMINE HCL [Concomitant]
     Indication: PROPHYLAXIS
     Route: 065
  5. VIDAZA [Suspect]
     Indication: MULTIPLE MYELOMA
     Dosage: 75 MILLIGRAM/SQ. METER
     Route: 058
  6. REVLIMID [Suspect]
     Indication: MULTIPLE MYELOMA
     Dosage: 10 MILLIGRAM
     Route: 048
  7. NEUPOGEN [Concomitant]
     Dosage: 5 MICROGRAM/KILOGRAM
     Route: 058
  8. FILGRASTIM [Concomitant]
     Dosage: 10 MICROGRAM/KILOGRAM
     Route: 058
  9. PLERIXAFOR [Concomitant]
     Dosage: .24 MILLIGRAM/KILOGRAM
     Route: 058
  10. ACETAMINOPHEN [Concomitant]
     Indication: PROPHYLAXIS
     Route: 065

REACTIONS (6)
  - PNEUMONITIS [None]
  - MULTIPLE MYELOMA [None]
  - PLASMACYTOMA [None]
  - ILEUS [None]
  - BLOOD PRESSURE INCREASED [None]
  - NEUTROPENIA [None]
